FAERS Safety Report 8942038 (Version 1)
Quarter: 2012Q4

REPORT INFORMATION
  Report Type: 
  Country: US (occurrence: US)
  Receive Date: 20121203
  Receipt Date: 20121203
  Transmission Date: 20130627
  Serious: Yes (Other)
  Sender: FDA-Public Use
  Company Number: US-SANOFI-AVENTIS-2012SA085266

PATIENT
  Sex: Female

DRUGS (2)
  1. PLAQUENIL [Suspect]
     Indication: LUPUS SYNDROME
     Route: 048
  2. IMURAN [Suspect]
     Route: 065

REACTIONS (2)
  - Coeliac disease [Not Recovered/Not Resolved]
  - Malaise [Not Recovered/Not Resolved]
